FAERS Safety Report 6231329-2 (Version None)
Quarter: 2009Q2

REPORT INFORMATION
  Report Type: 
  Country: None (occurrence: None)
  Receive Date: 20090616
  Receipt Date: 20090603
  Transmission Date: 20091009
  Serious: Yes (Hospitalization)
  Sender: FDA-Public Use
  Company Number: AU-SANOFI-SYNTHELABO-A01200905896

PATIENT
  Sex: Male

DRUGS (15)
  1. PLAVIX [Suspect]
     Indication: CORONARY ANGIOPLASTY
     Route: 048
     Dates: start: 20010101, end: 20080101
  2. PLAVIX [Suspect]
     Indication: STENT PLACEMENT
     Route: 048
     Dates: start: 20010101, end: 20080101
  3. PLAVIX [Suspect]
     Indication: ANGINA PECTORIS
     Route: 048
     Dates: start: 20010101, end: 20080101
  4. PLAVIX [Suspect]
     Route: 048
     Dates: end: 20090524
  5. PLAVIX [Suspect]
     Route: 048
     Dates: end: 20090524
  6. PLAVIX [Suspect]
     Route: 048
     Dates: end: 20090524
  7. PLAVIX [Suspect]
     Route: 048
     Dates: start: 20090530
  8. PLAVIX [Suspect]
     Route: 048
     Dates: start: 20090530
  9. PLAVIX [Suspect]
     Route: 048
     Dates: start: 20090530
  10. UREMIDE [Concomitant]
     Indication: DRUG USE FOR UNKNOWN INDICATION
     Dosage: UNK
     Route: 065
  11. BICOR [Concomitant]
     Indication: DRUG USE FOR UNKNOWN INDICATION
     Dosage: UNK
     Route: 065
  12. XALACOM [Concomitant]
     Indication: DRUG USE FOR UNKNOWN INDICATION
     Dosage: UNK
     Route: 065
  13. LIPITOR [Concomitant]
     Indication: DRUG USE FOR UNKNOWN INDICATION
     Dosage: UNK
     Route: 065
  14. RAMIPRIL [Concomitant]
     Indication: DRUG USE FOR UNKNOWN INDICATION
     Dosage: UNK
     Route: 065
  15. CARTIA XT [Concomitant]
     Indication: DRUG USE FOR UNKNOWN INDICATION
     Dosage: UNK
     Route: 065

REACTIONS (3)
  - CONTUSION [None]
  - MYOCARDIAL INFARCTION [None]
  - SKIN CANCER [None]
